FAERS Safety Report 7508990-5 (Version None)
Quarter: 2011Q2

REPORT INFORMATION
  Report Type: 
  Country: None (occurrence: None)
  Receive Date: 20110527
  Receipt Date: 20110513
  Transmission Date: 20111010
  Serious: Yes (Other)
  Sender: FDA-Public Use
  Company Number: US-TYCO HEALTHCARE/MALLINCKRODT-T201100850

PATIENT
  Age: 36 Year
  Sex: Male

DRUGS (2)
  1. PENNSAID [Suspect]
     Indication: NECK PAIN
     Dosage: UNK
     Dates: start: 20110418
  2. ADVIL LIQUI-GELS [Suspect]
     Dosage: TWO TABLETS, SINGLE
     Dates: start: 20110508, end: 20110508

REACTIONS (1)
  - ANAPHYLACTIC REACTION [None]
